FAERS Safety Report 9134328 (Version 2)
Quarter: 2013Q1

REPORT INFORMATION
  Report Type: Spontaneous
  Country: BE (occurrence: BE)
  Receive Date: 20130304
  Receipt Date: 20130326
  Transmission Date: 20140127
  Serious: Yes (Other)
  Sender: FDA-Public Use
  Company Number: BE-AMGEN-BELSP2013014707

PATIENT
  Age: 49 Year
  Sex: Female
  Weight: 63 kg

DRUGS (2)
  1. ENBREL [Suspect]
     Indication: RHEUMATOID ARTHRITIS
     Dosage: 50 MG, QWK
     Route: 058
     Dates: start: 20060112, end: 20130225
  2. NEROFEN [Concomitant]
     Dosage: UNK
     Route: 048

REACTIONS (1)
  - Pancreatitis acute [Recovering/Resolving]
